FAERS Safety Report 8072083-1 (Version None)
Quarter: 2011Q4

REPORT INFORMATION
  Report Type: 
  Country: None (occurrence: None)
  Receive Date: 20111221
  Receipt Date: 20110531
  Transmission Date: 20120403
  Serious: Yes (Hospitalization)
  Sender: FDA-Public Use
  Company Number: PHHY2011US47548

PATIENT
  Age: 75 Year
  Sex: Male
  Weight: 81.7 kg

DRUGS (1)
  1. EXJADE [Suspect]
     Dosage: 1500 MG, DAILY, ORAL
     Route: 048
     Dates: start: 20110428, end: 20110429

REACTIONS (1)
  - ABDOMINAL DISCOMFORT [None]
